FAERS Safety Report 9187731 (Version 1)
Quarter: 2013Q1

REPORT INFORMATION
  Report Type: Spontaneous
  Country: US (occurrence: US)
  Receive Date: 20130325
  Receipt Date: 20130325
  Transmission Date: 20140127
  Serious: No
  Sender: FDA-Public Use
  Company Number: US-MYLANLABS-2012S1004793

PATIENT
  Age: 57 Year
  Sex: Male

DRUGS (4)
  1. FENTANYL TRANSDERMAL SYSTEM [Suspect]
     Indication: BACK PAIN
     Dosage: Q48H
     Route: 062
  2. OXYCODONE HYDROCHLORIDE [Suspect]
     Indication: BACK PAIN
     Route: 048
  3. LEXAPRO [Concomitant]
  4. XANAX [Concomitant]

REACTIONS (2)
  - Drug screen negative [Not Recovered/Not Resolved]
  - Drug screen false positive [Not Recovered/Not Resolved]
